FAERS Safety Report 22256826 (Version 1)
Quarter: 2023Q2

REPORT INFORMATION
  Report Type: Spontaneous
  Country: US (occurrence: US)
  Receive Date: 20230426
  Receipt Date: 20230426
  Transmission Date: 20230721
  Serious: No
  Sender: FDA-Public Use
  Company Number: US-JNJFOC-20230442162

PATIENT
  Sex: Female
  Weight: 66.738 kg

DRUGS (2)
  1. CONCERTA [Suspect]
     Active Substance: METHYLPHENIDATE HYDROCHLORIDE
     Indication: Attention deficit hyperactivity disorder
     Route: 065
  2. METHYLPHENIDATE HYDROCHLORIDE [Suspect]
     Active Substance: METHYLPHENIDATE HYDROCHLORIDE
     Indication: Attention deficit hyperactivity disorder
     Dosage: METHYLPHENIDATE ER 36MG TABLETS
     Route: 048

REACTIONS (4)
  - Learning disorder [Unknown]
  - Nausea [Unknown]
  - Decreased appetite [Unknown]
  - Product label issue [Unknown]
